FAERS Safety Report 19605321 (Version 3)
Quarter: 2021Q3

REPORT INFORMATION
  Report Type: Spontaneous
  Country: LT (occurrence: LT)
  Receive Date: 20210723
  Receipt Date: 20210917
  Transmission Date: 20211014
  Serious: Yes (Other)
  Sender: FDA-Public Use
  Company Number: NVSC2021LT160429

PATIENT
  Age: 21 Year
  Sex: Male

DRUGS (3)
  1. FROMILID [Concomitant]
     Active Substance: CLARITHROMYCIN
     Indication: HELICOBACTER INFECTION
     Dosage: 500 MG, QD
     Route: 048
     Dates: start: 20210713, end: 20210714
  2. OMEPRAZOLE. [Concomitant]
     Active Substance: OMEPRAZOLE
     Indication: HELICOBACTER INFECTION
     Dosage: 20 MG, QD
     Route: 048
     Dates: start: 20210713, end: 20210714
  3. OSPAMOX [Suspect]
     Active Substance: AMOXICILLIN
     Indication: HELICOBACTER INFECTION
     Dosage: 2 DF, QD (1000 MG)
     Route: 048
     Dates: start: 20210713, end: 20210714

REACTIONS (7)
  - Nasal congestion [Recovered/Resolved]
  - Sinusitis [Recovered/Resolved]
  - Hyperhidrosis [Recovered/Resolved]
  - Asphyxia [Recovered/Resolved]
  - Eye pain [Recovered/Resolved]
  - Malaise [Recovered/Resolved]
  - Nasal mucosal blistering [Recovered/Resolved]

NARRATIVE: CASE EVENT DATE: 20210714
